FAERS Safety Report 26191129 (Version 1)
Quarter: 2025Q4

REPORT INFORMATION
  Report Type: Spontaneous
  Country: US (occurrence: None)
  Receive Date: 20251222
  Receipt Date: 20251222
  Transmission Date: 20260117
  Serious: No
  Sender: FDA-CTU
  Company Number: None

PATIENT
  Age: 48 Year
  Sex: Female
  Weight: 63 kg

DRUGS (12)
  1. XELSTRYM [Suspect]
     Active Substance: DEXTROAMPHETAMINE
     Indication: Narcolepsy
     Dosage: OTHER QUANTITY : 30 PATCH(ES);?FREQUENCY : DAILY;
     Route: 062
     Dates: start: 20251201
  2. FLONASE S0MCG NAS SPRAY RX (120SPR) [Concomitant]
  3. ESTROGENS [Concomitant]
     Active Substance: ESTROGENS
  4. PAXIL [Concomitant]
     Active Substance: PAROXETINE HYDROCHLORIDE
  5. ABILIFY [Concomitant]
     Active Substance: ARIPIPRAZOLE
  6. XELSTRYM [Concomitant]
     Active Substance: DEXTROAMPHETAMINE
  7. GABAPENTIN [Concomitant]
     Active Substance: GABAPENTIN
  8. BUPROPION [Concomitant]
     Active Substance: BUPROPION
  9. docasate [Concomitant]
  10. MAGNESIUM [Concomitant]
     Active Substance: MAGNESIUM
  11. MULTI-VITAMIN [Concomitant]
     Active Substance: .ALPHA.-TOCOPHEROL ACETATE, DL-\ASCORBIC ACID\CYANOCOBALAMIN\FLUORIDE ION\FOLIC ACID\NIACIN\PYRIDOXI
  12. DIM [Concomitant]

REACTIONS (2)
  - Application site rash [None]
  - Application site discolouration [None]

NARRATIVE: CASE EVENT DATE: 20251201
